FAERS Safety Report 24234792 (Version 1)
Quarter: 2024Q3

REPORT INFORMATION
  Report Type: Spontaneous
  Country: US (occurrence: None)
  Receive Date: 20240820
  Receipt Date: 20240820
  Transmission Date: 20241017
  Serious: Yes (Other)
  Sender: Public
  Company Number: None

PATIENT
  Age: 47 Year
  Sex: Female
  Weight: 61 kg

DRUGS (1)
  1. FERRIC GLUCONATE TRIHYDRATE [Suspect]
     Active Substance: FERRIC GLUCONATE TRIHYDRATE
     Dosage: 250 MG ONCE INTRAVENOUS
     Route: 042
     Dates: start: 20240724, end: 20240724

REACTIONS (4)
  - Infusion related reaction [None]
  - Peripheral swelling [None]
  - Pain in extremity [None]
  - Therapy interrupted [None]

NARRATIVE: CASE EVENT DATE: 20240724
